FAERS Safety Report 9676956 (Version 1)
Quarter: 2013Q4

REPORT INFORMATION
  Report Type: Spontaneous
  Country: US (occurrence: US)
  Receive Date: 20131108
  Receipt Date: 20131108
  Transmission Date: 20140711
  Serious: No
  Sender: FDA-Public Use
  Company Number: US-009507513-1311USA000663

PATIENT
  Sex: 0

DRUGS (1)
  1. VICTRELIS [Suspect]
     Route: 048

REACTIONS (1)
  - Disease recurrence [Unknown]
